FAERS Safety Report 14353924 (Version 1)
Quarter: 2018Q1

REPORT INFORMATION
  Report Type: Spontaneous
  Country: NL (occurrence: NL)
  Receive Date: 20180105
  Receipt Date: 20180105
  Transmission Date: 20180509
  Serious: Yes (Death, Other)
  Sender: FDA-Public Use
  Company Number: NL-APOTEX-2018AP005064

PATIENT
  Age: 76 Year
  Sex: Male

DRUGS (2)
  1. IMATINIB 400 [Suspect]
     Active Substance: IMATINIB
     Dosage: UNK
     Route: 065
  2. IMATINIB 400 [Suspect]
     Active Substance: IMATINIB
     Indication: GASTROINTESTINAL STROMAL TUMOUR
     Dosage: 400 MG, QD
     Route: 065

REACTIONS (4)
  - Drug ineffective [Fatal]
  - Gastrointestinal stromal tumour [Fatal]
  - Disease progression [Fatal]
  - Metastases to peritoneum [Fatal]
